FAERS Safety Report 5206446-6 (Version None)
Quarter: 2006Q4

REPORT INFORMATION
  Report Type: 
  Country: None (occurrence: None)
  Receive Date: 20061026
  Receipt Date: 20060913
  Transmission Date: 20070319
  Serious: Yes (Other)
  Sender: FDA-Public Use
  Company Number: 2006111875

PATIENT
  Sex: Male

DRUGS (1)
  1. LYRICA [Suspect]
     Indication: NEURALGIA
     Dosage: 300 MG (100 MG, 3 IN 1D)
     Dates: start: 20060101

REACTIONS (2)
  - AMNESIA [None]
  - MEMORY IMPAIRMENT [None]
